FAERS Safety Report 21735776 (Version 2)
Quarter: 2023Q1

REPORT INFORMATION
  Report Type: Spontaneous
  Country: US (occurrence: US)
  Receive Date: 20221215
  Receipt Date: 20230223
  Transmission Date: 20230418
  Serious: Yes (Life-Threatening, Hospitalization)
  Sender: FDA-Public Use
  Company Number: US-AMERICAN REGENT INC-2022003545

PATIENT
  Age: 85 Year
  Sex: Male
  Weight: 81 kg

DRUGS (4)
  1. VENOFER [Suspect]
     Active Substance: IRON SUCROSE
     Indication: Iron deficiency
     Dosage: 100 MG, EVERY TX
     Dates: start: 20221117
  2. VENOFER [Suspect]
     Active Substance: IRON SUCROSE
     Dosage: 100 MG, EVERY TX
     Dates: start: 20221206, end: 20221206
  3. MIRCERA [Suspect]
     Active Substance: METHOXY POLYETHYLENE GLYCOL-EPOETIN BETA
     Indication: Nephrogenic anaemia
     Dosage: 50 MCG, 1 IN 2 WK (FIRST DOSE)
     Dates: start: 20221123, end: 20221123
  4. MIRCERA [Suspect]
     Active Substance: METHOXY POLYETHYLENE GLYCOL-EPOETIN BETA
     Dosage: 50 MCG, 1 IN 2 WK (SECOND DOSE)
     Dates: start: 20221206, end: 20221206

REACTIONS (1)
  - Cardiac arrest [Recovered/Resolved]

NARRATIVE: CASE EVENT DATE: 20221206
